FAERS Safety Report 21803182 (Version 5)
Quarter: 2023Q2

REPORT INFORMATION
  Report Type: Report from Study
  Country: US (occurrence: US)
  Receive Date: 20230101
  Receipt Date: 20230410
  Transmission Date: 20230721
  Serious: No
  Sender: FDA-Public Use
  Company Number: US-GBT-018896

PATIENT
  Age: 30 Year
  Sex: Male

DRUGS (6)
  1. OXBRYTA [Suspect]
     Active Substance: VOXELOTOR
     Indication: Sickle cell disease
     Dates: start: 202211
  2. CRIZANLIZUMAB [Concomitant]
     Active Substance: CRIZANLIZUMAB
     Indication: Sickle cell disease
     Route: 042
     Dates: start: 20210401
  3. JADENU [Concomitant]
     Active Substance: DEFERASIROX
     Indication: Sickle cell disease
     Route: 048
     Dates: start: 20180504
  4. IBUPROFEN [Concomitant]
     Active Substance: IBUPROFEN
     Indication: Sickle cell disease
     Route: 048
     Dates: start: 20211213
  5. ROXICODONE [Concomitant]
     Active Substance: OXYCODONE HYDROCHLORIDE
     Indication: Sickle cell disease
     Dosage: TIME INTERVAL: AS NECESSARY: EVERY 4-6 HOURS AS NEEDED
     Route: 048
     Dates: start: 20211213
  6. ZOFRAN [Concomitant]
     Active Substance: ONDANSETRON HYDROCHLORIDE
     Indication: Sickle cell disease
     Route: 048
     Dates: start: 20221114, end: 20221114

REACTIONS (1)
  - Diarrhoea [Recovered/Resolved]

NARRATIVE: CASE EVENT DATE: 20221122
